FAERS Safety Report 4339907-2 (Version None)
Quarter: 2004Q2

REPORT INFORMATION
  Report Type: 
  Country: None (occurrence: None)
  Receive Date: 20040412
  Receipt Date: 20040329
  Transmission Date: 20050107
  Serious: No
  Sender: FDA-Public Use
  Company Number: 04H-028-0255690-00

PATIENT
  Age: 14 Day
  Sex: Male

DRUGS (4)
  1. MORPHINE SULFATE [Suspect]
     Dosage: 10 MCG/KG/HR, CONTINUOUS INFUSION, INTRAVENOUS
     Route: 042
     Dates: start: 19990101
  2. DOPAMINE HCL [Concomitant]
  3. VECURONIUM BROMIDE [Concomitant]
  4. DEXAMETHASONE [Concomitant]

REACTIONS (4)
  - CEREBRAL HAEMORRHAGE NEONATAL [None]
  - CONVULSION NEONATAL [None]
  - ELECTROENCEPHALOGRAM ABNORMAL [None]
  - NEONATAL RESPIRATORY FAILURE [None]
